FAERS Safety Report 17411232 (Version 9)
Quarter: 2021Q1

REPORT INFORMATION
  Report Type: Report from Study
  Country: US (occurrence: US)
  Receive Date: 20200212
  Receipt Date: 20210113
  Transmission Date: 20210419
  Serious: Yes (Death, Other)
  Sender: FDA-Public Use
  Company Number: NVSC2020US032019

PATIENT
  Age: 81 Year
  Sex: Male

DRUGS (2)
  1. ENTRESTO [Suspect]
     Active Substance: SACUBITRIL\VALSARTAN
     Dosage: 200 MG, BID (97/103 MG)
     Route: 048
     Dates: start: 20200131
  2. ENTRESTO [Suspect]
     Active Substance: SACUBITRIL\VALSARTAN
     Indication: CARDIAC FAILURE
     Dosage: 50 MG (24/26 MG), UNKNOWN
     Route: 048
     Dates: start: 20200124

REACTIONS (12)
  - Ileus [Unknown]
  - Pruritus [Recovered/Resolved]
  - Cardiac dysfunction [Unknown]
  - Confusional state [Unknown]
  - Cerebrovascular accident [Unknown]
  - Death [Fatal]
  - Vomiting [Recovered/Resolved]
  - Nausea [Unknown]
  - Diarrhoea [Recovered/Resolved]
  - Cough [Not Recovered/Not Resolved]
  - Hypotension [Unknown]
  - Constipation [Unknown]

NARRATIVE: CASE EVENT DATE: 202007
